FAERS Safety Report 8796203 (Version 2)
Quarter: 2012Q4

REPORT INFORMATION
  Report Type: 
  Country: US (occurrence: US)
  Receive Date: 20120920
  Receipt Date: 20121004
  Transmission Date: 20130627
  Serious: Yes (Death)
  Sender: FDA-Public Use
  Company Number: US-PFIZER INC-2012230849

PATIENT
  Age: 71 Year
  Sex: Male

DRUGS (1)
  1. SUTENT [Suspect]
     Indication: THYMOMA MALIGNANT
     Dosage: 12.5 mg, 25 mg, cyclic, 4wks on, 2wks off
     Dates: start: 20120831

REACTIONS (1)
  - Road traffic accident [Fatal]
